FAERS Safety Report 6315969-8 (Version None)
Quarter: 2009Q3

REPORT INFORMATION
  Report Type: 
  Country: None (occurrence: None)
  Receive Date: 20090820
  Receipt Date: 20090813
  Transmission Date: 20100115
  Serious: Yes (Other)
  Sender: FDA-Public Use
  Company Number: FR-WYE-G04238609

PATIENT
  Sex: Female

DRUGS (7)
  1. EFFEXOR [Interacting]
     Indication: ANXIETY
     Route: 048
     Dates: start: 20090804, end: 20090807
  2. TAREG [Concomitant]
     Indication: HYPERTENSION
     Dosage: UNKNOWN
  3. PRAZEPAM [Concomitant]
  4. ISKEDYL [Concomitant]
     Dosage: UNKNOWN
  5. NOCTAMID [Suspect]
     Dosage: UNKNOWN DOSE FROM AN UNKNOWN DATE TO 07-AUG-2009; THERAPY RESUMED ON 10-AUG-2009
  6. AROMASIN [Interacting]
     Indication: BREAST CANCER
  7. VASTAREL [Concomitant]
     Dosage: UNKNOWN

REACTIONS (6)
  - CONFUSIONAL STATE [None]
  - DRUG INTERACTION [None]
  - HYPERSOMNIA [None]
  - HYPONATRAEMIA [None]
  - POLLAKIURIA [None]
  - URINARY INCONTINENCE [None]
